FAERS Safety Report 5899555-X (Version None)
Quarter: 2008Q3

REPORT INFORMATION
  Report Type: 
  Country: None (occurrence: None)
  Receive Date: 20080926
  Receipt Date: 20080917
  Transmission Date: 20090109
  Serious: Yes (Other)
  Sender: FDA-Public Use
  Company Number: PHEH2008US08313

PATIENT
  Sex: Female

DRUGS (1)
  1. FOCALIN [Suspect]
     Dosage: UNK
     Dates: start: 20080915

REACTIONS (2)
  - HYPOAESTHESIA [None]
  - MOVEMENT DISORDER [None]
